FAERS Safety Report 9791746 (Version 5)
Quarter: 2015Q1

REPORT INFORMATION
  Report Type: Report from Study
  Country: CA (occurrence: CA)
  Receive Date: 20140102
  Receipt Date: 20150112
  Transmission Date: 20150721
  Serious: Yes (Hospitalization)
  Sender: FDA-Public Use
  Company Number: CA-BAYER-2013-158573

PATIENT
  Age: 68 Year
  Sex: Female
  Weight: 46.5 kg

DRUGS (9)
  1. VITAMIN D [Concomitant]
     Active Substance: CHOLECALCIFEROL
     Indication: SUPPLEMENTATION THERAPY
     Dosage: 1 DF, QD
     Route: 048
     Dates: start: 1995
  2. CRESTOR [Concomitant]
     Active Substance: ROSUVASTATIN CALCIUM
     Indication: HYPERCHOLESTEROLAEMIA
     Dosage: 10 MG, QD
     Route: 048
     Dates: start: 2005
  3. TYLENOL [Concomitant]
     Active Substance: ACETAMINOPHEN
     Indication: BACK PAIN
     Dosage: 1 DF, PRN
     Route: 048
     Dates: start: 2003
  4. SECTRAL [Concomitant]
     Active Substance: ACEBUTOLOL HYDROCHLORIDE
     Indication: HYPERTENSION
     Dosage: 100 MG, QD
     Route: 048
     Dates: start: 1995
  5. WELLBUTRIN XL [Concomitant]
     Active Substance: BUPROPION HYDROCHLORIDE
     Indication: DEPRESSION
     Dosage: 150 MG, QD
     Route: 048
     Dates: start: 2003
  6. REGORAFENIB [Suspect]
     Active Substance: REGORAFENIB
     Indication: NON-SMALL CELL LUNG CANCER
     Dosage: DAILY DOSE 160 MG
     Route: 048
     Dates: start: 20131126, end: 20131216
  7. AVAPRO [Concomitant]
     Active Substance: IRBESARTAN
     Indication: HYPERTENSION
     Dosage: 150 MG, QD
     Route: 048
     Dates: start: 2005
  8. SPIRIVA [Concomitant]
     Active Substance: TIOTROPIUM BROMIDE MONOHYDRATE
     Indication: CHRONIC OBSTRUCTIVE PULMONARY DISEASE
     Dosage: 18 MCG/24HR, QD
     Route: 048
     Dates: start: 2010
  9. ADVIL [Concomitant]
     Active Substance: IBUPROFEN
     Indication: BACK PAIN
     Dosage: 200 MG, PRN
     Route: 048
     Dates: start: 2003

REACTIONS (1)
  - Dehydration [Recovered/Resolved]

NARRATIVE: CASE EVENT DATE: 20131224
